FAERS Safety Report 8835554 (Version 1)
Quarter: 2012Q4

REPORT INFORMATION
  Report Type: 
  Country: BR (occurrence: BR)
  Receive Date: 20121011
  Receipt Date: 20121011
  Transmission Date: 20130627
  Serious: Yes (Other)
  Sender: FDA-Public Use
  Company Number: BR-ELI_LILLY_AND_COMPANY-BR201203008303

PATIENT
  Sex: Female
  Weight: 55 kg

DRUGS (3)
  1. FORTEO [Suspect]
     Indication: OSTEOPOROSIS
     Dosage: UNK, qd
     Route: 058
     Dates: start: 20120317
  2. FINASTERIDE [Concomitant]
     Dosage: UNK, unknown
     Route: 065
  3. ERGOCALCIFEROL [Concomitant]
     Indication: OSTEOPOROSIS
     Dosage: UNK, unknown
     Route: 065

REACTIONS (7)
  - Arrhythmia [Unknown]
  - Palpitations [Unknown]
  - Tachycardia [Unknown]
  - Sensation of pressure [Unknown]
  - Dizziness [Unknown]
  - Incorrect dose administered [Unknown]
  - Nausea [Unknown]
